FAERS Safety Report 21585043 (Version 1)
Quarter: 2022Q4

REPORT INFORMATION
  Report Type: Report from Study
  Country: US (occurrence: US)
  Receive Date: 20221111
  Receipt Date: 20221111
  Transmission Date: 20230113
  Serious: Yes (Hospitalization, Other)
  Sender: FDA-Public Use
  Company Number: US-ABBVIE-4195485

PATIENT
  Sex: Male

DRUGS (1)
  1. RINVOQ [Suspect]
     Active Substance: UPADACITINIB
     Indication: Rheumatoid arthritis
     Route: 048

REACTIONS (6)
  - Transient ischaemic attack [Recovering/Resolving]
  - Hypoaesthesia [Unknown]
  - Peripheral swelling [Unknown]
  - Gastric ulcer [Recovering/Resolving]
  - Drug hypersensitivity [Unknown]
  - Facial pain [Unknown]
